FAERS Safety Report 14099832 (Version 2)
Quarter: 2017Q4

REPORT INFORMATION
  Report Type: Spontaneous
  Country: US (occurrence: US)
  Receive Date: 20171017
  Receipt Date: 20171208
  Transmission Date: 20180321
  Serious: Yes (Hospitalization, Other)
  Sender: FDA-Public Use
  Company Number: US-ASTRAZENECA-2017SF05116

PATIENT
  Age: 675 Month
  Sex: Male
  Weight: 90.7 kg

DRUGS (1)
  1. BRILINTA [Suspect]
     Active Substance: TICAGRELOR
     Indication: STENT PLACEMENT
     Route: 048
     Dates: start: 201609

REACTIONS (3)
  - Abdominal abscess [Unknown]
  - Appendicitis [Recovering/Resolving]
  - Appendicitis perforated [Unknown]

NARRATIVE: CASE EVENT DATE: 201710
